FAERS Safety Report 7448843-4 (Version None)
Quarter: 2011Q2

REPORT INFORMATION
  Report Type: 
  Country: None (occurrence: None)
  Receive Date: 20110429
  Receipt Date: 20101201
  Transmission Date: 20111010
  Serious: No
  Sender: FDA-Public Use
  Company Number: US-ASTRAZENECA-2009UW19456

PATIENT
  Age: 60 Year
  Sex: Female

DRUGS (2)
  1. NEXIUM [Suspect]
     Route: 048
     Dates: start: 20090101
  2. PRILOSEC [Suspect]
     Route: 048

REACTIONS (10)
  - REGURGITATION [None]
  - HAND DEFORMITY [None]
  - DISABILITY [None]
  - DRUG DOSE OMISSION [None]
  - MALAISE [None]
  - DRUG INEFFECTIVE [None]
  - TRANSIENT ISCHAEMIC ATTACK [None]
  - NAUSEA [None]
  - GASTROOESOPHAGEAL REFLUX DISEASE [None]
  - PAIN [None]
